FAERS Safety Report 8476144-4 (Version None)
Quarter: 2012Q2

REPORT INFORMATION
  Report Type: 
  Country: None (occurrence: None)
  Receive Date: 20120628
  Receipt Date: 20120618
  Transmission Date: 20120825
  Serious: Yes (Hospitalization)
  Sender: FDA-Public Use
  Company Number: US-ELI_LILLY_AND_COMPANY-US201009006206

PATIENT
  Sex: Female

DRUGS (17)
  1. FORTEO [Suspect]
     Dosage: 20 UG, QD
     Route: 065
  2. FORTEO [Suspect]
     Dosage: UNK, QD
  3. IRON [Concomitant]
     Indication: ANAEMIA
     Dosage: UNK
  4. FORTEO [Suspect]
     Dosage: UNK, QD
  5. CALCIUM CARBONATE [Concomitant]
     Indication: OSTEOPOROSIS
     Dosage: UNK
  6. PRAVASTATIN [Concomitant]
     Indication: BLOOD CHOLESTEROL
     Dosage: UNK, QD
  7. FORTEO [Suspect]
     Dosage: 20 UG, QD
     Route: 065
  8. PREDNISONE TAB [Concomitant]
     Indication: RHEUMATOID ARTHRITIS
     Dosage: UNK, UNKNOWN
     Route: 065
     Dates: start: 20101001
  9. BENTYL [Concomitant]
     Dosage: 2 DF, QID
  10. SKELAXIN [Concomitant]
     Indication: MUSCLE RELAXANT THERAPY
     Dosage: UNK
  11. FORTEO [Suspect]
     Dosage: 20 UG, DAILY (1/D)
     Route: 065
  12. VICODIN [Concomitant]
     Indication: PAIN
     Dosage: UNK, UNKNOWN
     Route: 065
  13. FORTEO [Suspect]
     Indication: OSTEOPOROSIS
     Dosage: 20 UG, DAILY (1/D)
     Route: 065
     Dates: start: 20100901
  14. FORTEO [Suspect]
     Dosage: 20 UG, QD
     Route: 065
  15. FORTEO [Suspect]
     Dosage: 20 UG, QD
     Route: 065
  16. METHOTREXATE [Concomitant]
     Indication: RHEUMATOID ARTHRITIS
     Dosage: UNK, UNKNOWN
     Route: 065
  17. STOOL SOFTENER [Concomitant]
     Dosage: UNK

REACTIONS (28)
  - CARDIAC DISORDER [None]
  - HEADACHE [None]
  - RHEUMATOID ARTHRITIS [None]
  - INJECTION SITE HAEMORRHAGE [None]
  - BLOOD TRIGLYCERIDES INCREASED [None]
  - BLOOD CHOLESTEROL INCREASED [None]
  - HYPOAESTHESIA [None]
  - INJECTION SITE PAIN [None]
  - ANGIOPATHY [None]
  - CARPAL TUNNEL SYNDROME [None]
  - CARDIAC FAILURE CONGESTIVE [None]
  - LUNG NEOPLASM [None]
  - POLYMYALGIA RHEUMATICA [None]
  - MOVEMENT DISORDER [None]
  - VITAMIN D DECREASED [None]
  - FATIGUE [None]
  - DIZZINESS [None]
  - RENAL FAILURE [None]
  - HERNIA [None]
  - FAECES HARD [None]
  - RENAL DISORDER [None]
  - ARTHRALGIA [None]
  - PAIN [None]
  - URINE ODOUR ABNORMAL [None]
  - URINARY TRACT INFECTION [None]
  - BLOOD THYROID STIMULATING HORMONE DECREASED [None]
  - CONTUSION [None]
  - INJECTION SITE HAEMATOMA [None]
